FAERS Safety Report 7125262-1 (Version None)
Quarter: 2010Q4

REPORT INFORMATION
  Report Type: 
  Country: None (occurrence: None)
  Receive Date: 20101129
  Receipt Date: 20101115
  Transmission Date: 20110411
  Serious: Yes (Hospitalization)
  Sender: FDA-Public Use
  Company Number: JP-SANOFI-AVENTIS-2010SA041203

PATIENT
  Age: 79 Year
  Sex: Female
  Weight: 48.2 kg

DRUGS (10)
  1. MYSLEE [Suspect]
     Indication: INSOMNIA
     Route: 048
     Dates: start: 20080711, end: 20090207
  2. NOVORAPID [Concomitant]
     Route: 065
  3. COROHERSER [Concomitant]
     Route: 065
  4. BISOPROLOL FUMARATE [Concomitant]
     Route: 065
  5. LASIX [Concomitant]
     Route: 065
  6. 8-HOUR BAYER [Concomitant]
     Route: 065
  7. WARFARIN POTASSIUM [Concomitant]
     Route: 065
  8. TEPRENONE [Concomitant]
     Route: 065
  9. ALFAROL [Concomitant]
     Route: 065
  10. ANTICHOLINERGIC AGENTS [Concomitant]
     Route: 065

REACTIONS (3)
  - AMNESIA [None]
  - BLOOD GLUCOSE INCREASED [None]
  - SLEEP-RELATED EATING DISORDER [None]
